FAERS Safety Report 15751898 (Version 1)
Quarter: 2018Q4

REPORT INFORMATION
  Report Type: Report from Study
  Country: BR (occurrence: BR)
  Receive Date: 20181221
  Receipt Date: 20181221
  Transmission Date: 20190205
  Serious: Yes (Death, Hospitalization, Other)
  Sender: FDA-Public Use
  Company Number: BR-UCBSA-2018056016

PATIENT
  Age: 70 Year
  Sex: Female

DRUGS (2)
  1. PROLOPA [Concomitant]
     Active Substance: BENSERAZIDE\LEVODOPA
     Indication: PARKINSON^S DISEASE
  2. ROTIGOTINE [Suspect]
     Active Substance: ROTIGOTINE
     Indication: PARKINSON^S DISEASE
     Dosage: 6 MG, ONCE DAILY (QD)
     Route: 062
     Dates: start: 201711, end: 20180519

REACTIONS (3)
  - Pyrexia [Unknown]
  - Parkinson^s disease [Not Recovered/Not Resolved]
  - Nosocomial infection [Fatal]

NARRATIVE: CASE EVENT DATE: 201805
